FAERS Safety Report 9255213 (Version 2)
Quarter: 2013Q3

REPORT INFORMATION
  Report Type: Spontaneous
  Country: IT (occurrence: IT)
  Receive Date: 20130425
  Receipt Date: 20130820
  Transmission Date: 20140515
  Serious: Yes (Death, Hospitalization)
  Sender: FDA-Public Use
  Company Number: IT-BAYER-2013-050988

PATIENT
  Age: 74 Year
  Sex: Male

DRUGS (6)
  1. CARDIOASPIRIN [Suspect]
     Indication: ISCHAEMIC STROKE
     Dosage: 100 MG, QD
     Route: 048
     Dates: start: 20130120, end: 20130131
  2. FRAXIPARINA [Suspect]
     Indication: PROPHYLAXIS
     Dosage: DAILY DOSE 3.8 DF
     Route: 058
     Dates: start: 20130120, end: 20130131
  3. OLMESARTAN MEDOXOMIL [Concomitant]
     Indication: HYPERTENSION
     Dosage: DAILY DOSE 10 MG
     Route: 048
  4. DOMPERIDONE [Concomitant]
     Indication: NAUSEA
     Dosage: DAILY DOSE 10 MG
     Route: 048
  5. SILODOSIN [Concomitant]
     Indication: BENIGN PROSTATIC HYPERPLASIA
     Dosage: DAILY DOSE 8 MG
     Route: 048
  6. MADOPAR [Concomitant]
     Indication: VASCULAR PARKINSONISM
     Dosage: UNK
     Route: 048

REACTIONS (4)
  - Cerebral haematoma [Fatal]
  - Haemorrhagic transformation stroke [Fatal]
  - Dyspnoea [Not Recovered/Not Resolved]
  - Altered state of consciousness [Not Recovered/Not Resolved]
